FAERS Safety Report 9227031 (Version 2)
Quarter: 2013Q2

REPORT INFORMATION
  Report Type: Spontaneous
  Country: US (occurrence: None)
  Receive Date: 20130410
  Receipt Date: 20130424
  Transmission Date: 20140414
  Serious: Yes (Hospitalization)
  Sender: FDA-Public Use
  Company Number: JPI-P-030929

PATIENT
  Age: 66 Year
  Sex: Female

DRUGS (3)
  1. XYREM [Suspect]
     Indication: SLEEP DISORDER
     Route: 048
     Dates: start: 200412
  2. DRUG FOR HYPERTENSION [Concomitant]
  3. DRUG FOR THYROID [Concomitant]

REACTIONS (2)
  - Knee arthroplasty [None]
  - Device dislocation [None]
